FAERS Safety Report 14137444 (Version 2)
Quarter: 2017Q4

REPORT INFORMATION
  Report Type: Spontaneous
  Country: TR (occurrence: TR)
  Receive Date: 20171027
  Receipt Date: 20171201
  Transmission Date: 20180321
  Serious: Yes (Disabling)
  Sender: FDA-Public Use
  Company Number: TR-ROCHE-2014542

PATIENT
  Age: 29 Year
  Sex: Male

DRUGS (1)
  1. LUCENTIS [Suspect]
     Active Substance: RANIBIZUMAB
     Indication: PRODUCT USED FOR UNKNOWN INDICATION
     Route: 031

REACTIONS (5)
  - Vitreous disorder [Recovering/Resolving]
  - Anterior chamber disorder [Recovering/Resolving]
  - Off label use [Unknown]
  - Endophthalmitis [Recovering/Resolving]
  - Visual acuity reduced [Recovered/Resolved]

NARRATIVE: CASE EVENT DATE: 20171016
